FAERS Safety Report 4365762-0 (Version None)
Quarter: 2004Q2

REPORT INFORMATION
  Report Type: 
  Country: None (occurrence: None)
  Receive Date: 20040520
  Receipt Date: 20040507
  Transmission Date: 20050107
  Serious: Yes (Other)
  Sender: FDA-Public Use
  Company Number: 2004-05-0335

PATIENT
  Age: 11 Year
  Sex: Male

DRUGS (4)
  1. CLARITIN [Suspect]
     Indication: ALLERGY TO ANIMAL
     Dosage: 10 MG QD ORAL
     Route: 048
     Dates: start: 19980101
  2. CLARITIN [Suspect]
     Indication: SEASONAL ALLERGY
     Dosage: 10 MG QD ORAL
     Route: 048
     Dates: start: 19980101
  3. LOMUDAL OPHTHALMIC SOLUTION [Concomitant]
  4. FLUTIDE (FLUTICASONE PROPIONATE) [Concomitant]

REACTIONS (3)
  - CRYING [None]
  - DEPRESSION [None]
  - SELF INJURIOUS BEHAVIOUR [None]
